FAERS Safety Report 7226089-2 (Version None)
Quarter: 2011Q1

REPORT INFORMATION
  Report Type: 
  Country: None (occurrence: None)
  Receive Date: 20110113
  Receipt Date: 20110113
  Transmission Date: 20110831
  Serious: No
  Sender: FDA-Public Use
  Company Number: US-AMGEN-KDL437815

PATIENT

DRUGS (3)
  1. ENBREL [Suspect]
     Dosage: 50 MG, QWK
     Dates: start: 20100301, end: 20101001
  2. HUMIRA [Suspect]
     Dosage: UNK
     Dates: start: 20101001
  3. ENBREL [Suspect]
     Indication: RHEUMATOID ARTHRITIS
     Dosage: 50 MG, QWK
     Route: 058
     Dates: start: 20100301

REACTIONS (4)
  - DRUG INEFFECTIVE [None]
  - INJECTION SITE PAIN [None]
  - INJECTION SITE HAEMORRHAGE [None]
  - ARTHRITIS [None]
